FAERS Safety Report 13625196 (Version 1)
Quarter: 2017Q2

REPORT INFORMATION
  Report Type: Spontaneous
  Country: US (occurrence: US)
  Receive Date: 20170608
  Receipt Date: 20170608
  Transmission Date: 20170830
  Serious: No
  Sender: FDA-Public Use
  Company Number: US-BAYER-2017-109676

PATIENT
  Age: 77 Year
  Sex: Male
  Weight: 79 kg

DRUGS (1)
  1. ALEVE PM [Suspect]
     Active Substance: DIPHENHYDRAMINE HYDROCHLORIDE\NAPROXEN SODIUM
     Indication: INSOMNIA
     Dosage: 2 DF, UNK
     Route: 048

REACTIONS (1)
  - Drug ineffective [Unknown]
